FAERS Safety Report 18014015 (Version 2)
Quarter: 2020Q3

REPORT INFORMATION
  Report Type: Spontaneous
  Country: FR (occurrence: FR)
  Receive Date: 20200713
  Receipt Date: 20200807
  Transmission Date: 20201103
  Serious: Yes (Other)
  Sender: FDA-Public Use
  Company Number: FR-US-PROVELL PHARMACEUTICALS LLC-8185792

PATIENT
  Sex: Female

DRUGS (6)
  1. LEVOTHYROX [Suspect]
     Active Substance: LEVOTHYROXINE
     Dosage: LEVOTHYROX NF
  2. LEVOTHYROX [Suspect]
     Active Substance: LEVOTHYROXINE
     Dosage: DOSE INCREASED
  3. LANSOPRAZOLE. [Concomitant]
     Active Substance: LANSOPRAZOLE
     Indication: GASTRIC DISORDER
  4. NATRILIX                           /00340101/ [Concomitant]
     Active Substance: INDAPAMIDE
     Indication: PRODUCT USED FOR UNKNOWN INDICATION
  5. SYMBICORT [Concomitant]
     Active Substance: BUDESONIDE\FORMOTEROL FUMARATE DIHYDRATE
     Indication: PRODUCT USED FOR UNKNOWN INDICATION
  6. LEVOTHYROX [Suspect]
     Active Substance: LEVOTHYROXINE
     Indication: THYROID ATROPHY
     Dosage: LEVOTHYROX OF
     Dates: start: 1982

REACTIONS (17)
  - Vertigo [Unknown]
  - Dyspnoea [Not Recovered/Not Resolved]
  - Cardiovascular disorder [Unknown]
  - Hypertension [Unknown]
  - Post procedural complication [Unknown]
  - Anger [Unknown]
  - Blood thyroid stimulating hormone increased [Unknown]
  - Oral pain [Unknown]
  - Peripheral artery thrombosis [Unknown]
  - Phlebitis [Unknown]
  - Insomnia [Unknown]
  - Headache [Unknown]
  - Sleep disorder [Unknown]
  - Visual impairment [Unknown]
  - Cataract [Unknown]
  - Pain in extremity [Unknown]
  - Arthralgia [Unknown]
